FAERS Safety Report 4487650-1 (Version None)
Quarter: 2004Q4

REPORT INFORMATION
  Report Type: 
  Country: None (occurrence: None)
  Receive Date: 20041025
  Receipt Date: 20041020
  Transmission Date: 20050328
  Serious: Yes (Death)
  Sender: FDA-Public Use
  Company Number: TCI2004A01763

PATIENT
  Age: 83 Year
  Sex: Male

DRUGS (6)
  1. TAKEPRON CAPSULES 30 (LANSOPRAZOLE) (CAPSULES) [Suspect]
     Indication: REFLUX OESOPHAGITIS
     Dosage: 30 MG (30 MG, 1 IN 1 D) ORAL
     Route: 048
     Dates: start: 20040320, end: 20040325
  2. ITOROL (ISOSORBID MONONITRATE) TABLETS) [Concomitant]
  3. HARNAL (TAMSULOSIN HYDROCHLORIDE) (CAPSULES) [Concomitant]
  4. ESRON B (LACTEC) (INJECTION) [Concomitant]
  5. SUBVITAN N (SUBVITAN) (INJECTION) [Concomitant]
  6. FUROSEMIDE (FUROSEMIDE) (INJECTION) [Concomitant]

REACTIONS (13)
  - BLOOD GLUCOSE INCREASED [None]
  - BLOOD PRESSURE DECREASED [None]
  - CIRCULATORY COLLAPSE [None]
  - DEPRESSED LEVEL OF CONSCIOUSNESS [None]
  - DISSEMINATED INTRAVASCULAR COAGULATION [None]
  - ERYTHEMA [None]
  - HEPATITIS FULMINANT [None]
  - HYPOGLYCAEMIA [None]
  - LIVER DISORDER [None]
  - MARKEDLY REDUCED DIETARY INTAKE [None]
  - MULTI-ORGAN FAILURE [None]
  - OXYGEN SATURATION DECREASED [None]
  - PROTHROMBIN TIME SHORTENED [None]
